FAERS Safety Report 19459368 (Version 1)
Quarter: 2021Q2

REPORT INFORMATION
  Report Type: Spontaneous
  Country: FR (occurrence: FR)
  Receive Date: 20210624
  Receipt Date: 20210624
  Transmission Date: 20210717
  Serious: Yes (Hospitalization)
  Sender: FDA-Public Use
  Company Number: FR-PFIZER INC-2021687458

PATIENT
  Age: 79 Year
  Sex: Female

DRUGS (5)
  1. BISOCE [Suspect]
     Active Substance: BISOPROLOL
     Indication: HYPERTENSION
     Dosage: 1 DF, 1X/DAY AS LONG TERM TREATMENT
     Route: 048
  2. BIPRETERAX [INDAPAMIDE;PERINDOPRIL ARGININE] [Suspect]
     Active Substance: INDAPAMIDE\PERINDOPRIL ARGININE
     Indication: HYPERTENSION
     Dosage: 1 DF, 1X/DAY AS LONG TERM TREATMENT
     Route: 048
     Dates: end: 20200925
  3. ALDACTONE [Suspect]
     Active Substance: SPIRONOLACTONE
     Indication: MYOCARDIAL ISCHAEMIA
     Dosage: 1 DF, 1X/DAY AS LONG TERM TREATMENT
     Route: 048
     Dates: end: 20200927
  4. LEXOMIL [Suspect]
     Active Substance: BROMAZEPAM
     Dosage: 0.25 DF, 2X/DAY
     Route: 048
     Dates: end: 20200927
  5. SIFROL [Concomitant]
     Active Substance: PRAMIPEXOLE
     Indication: PARKINSON^S DISEASE
     Dosage: 1 DF, 2X/DAY
     Route: 048
     Dates: end: 20200925

REACTIONS (1)
  - Fall [Recovered/Resolved]

NARRATIVE: CASE EVENT DATE: 20200925
